FAERS Safety Report 5979189-9 (Version None)
Quarter: 2008Q4

REPORT INFORMATION
  Report Type: 
  Country: None (occurrence: None)
  Receive Date: 20081204
  Receipt Date: 20080327
  Transmission Date: 20090506
  Serious: No
  Sender: FDA-Public Use
  Company Number: US-ABBOTT-08P-163-0444718-00

PATIENT
  Sex: Male
  Weight: 115.32 kg

DRUGS (11)
  1. TRICOR [Suspect]
     Indication: BLOOD CHOLESTEROL INCREASED
     Route: 048
     Dates: start: 20070601, end: 20071201
  2. TRICOR [Suspect]
     Indication: BLOOD TRIGLYCERIDES INCREASED
  3. ARTIFICIAL TESTOSTERONE ANDERGEL [Concomitant]
     Indication: BLOOD TESTOSTERONE
     Route: 061
  4. HYDROCORTISONE [Concomitant]
     Indication: HYPOTHALAMO-PITUITARY DISORDER
     Route: 048
  5. HYDROCHLOROTHIAZIDE [Concomitant]
     Indication: FLUID IMBALANCE
     Dosage: 1 PILL
     Route: 048
  6. VERAMPIL [Concomitant]
     Indication: CARDIAC DISORDER
     Route: 048
  7. GABAPENTIN [Concomitant]
     Indication: PAIN
     Route: 048
  8. TERRASIM [Concomitant]
     Indication: DRUG USE FOR UNKNOWN INDICATION
     Route: 048
  9. LEXIPRIL [Concomitant]
     Indication: DEPRESSION
     Route: 048
  10. POTASSIUM CHLORIDE [Concomitant]
     Indication: ELECTROLYTE SUBSTITUTION THERAPY
     Route: 048
  11. ASPIRIN [Concomitant]
     Indication: PROPHYLAXIS
     Route: 048

REACTIONS (2)
  - ARTHRALGIA [None]
  - MYALGIA [None]
